FAERS Safety Report 23482122 (Version 1)
Quarter: 2024Q1

REPORT INFORMATION
  Report Type: Report from Study
  Country: CO (occurrence: CO)
  Receive Date: 20240205
  Receipt Date: 20240205
  Transmission Date: 20240410
  Serious: Yes (Death, Other)
  Sender: FDA-Public Use
  Company Number: CO-ABBVIE-5620960

PATIENT
  Sex: Male

DRUGS (35)
  1. VENCLEXTA [Suspect]
     Active Substance: VENETOCLAX
     Indication: Acute myeloid leukaemia
     Dosage: FORM STRENGTH 100 MILLIGRAM
     Route: 048
     Dates: start: 20240108, end: 20240127
  2. FUROSEMIDE [Concomitant]
     Active Substance: FUROSEMIDE
     Indication: Coronary artery disease
     Dosage: FORM STRENGTH 40 MILLIGRAM, FUROSEMIDE 20MG/2ML AMP 2ML
     Dates: start: 20231230, end: 20240124
  3. INSULIN GLULISINE [Concomitant]
     Active Substance: INSULIN GLULISINE
     Indication: Type 2 diabetes mellitus
     Dates: start: 20240102, end: 20240103
  4. INSULIN GLULISINE [Concomitant]
     Active Substance: INSULIN GLULISINE
     Indication: Type 2 diabetes mellitus
     Dates: start: 20240103, end: 20240125
  5. INSULIN GLULISINE [Concomitant]
     Active Substance: INSULIN GLULISINE
     Indication: Type 2 diabetes mellitus
     Dates: start: 20231229, end: 20240101
  6. METOPROLOL [Concomitant]
     Active Substance: METOPROLOL
     Indication: Coronary artery disease
     Dosage: FORM STRENGTH 40 MILLIGRAM
     Dates: start: 20231230, end: 20240128
  7. DAPAGLIFLOZIN [Concomitant]
     Active Substance: DAPAGLIFLOZIN
     Indication: Type 2 diabetes mellitus
     Dosage: FORM STRENGTH 10 MILLIGRAM
     Dates: start: 20231227, end: 20240125
  8. LIDOCAINE [Concomitant]
     Active Substance: LIDOCAINE
     Indication: Prophylaxis
     Dates: start: 20240112, end: 20240126
  9. LIDOCAINE [Concomitant]
     Active Substance: LIDOCAINE
     Indication: Prophylaxis
     Dates: start: 20231222, end: 20231228
  10. OMEPRAZOLE [Concomitant]
     Active Substance: OMEPRAZOLE
     Indication: Chronic gastritis
     Dates: start: 20231223, end: 20240108
  11. OMEPRAZOLE [Concomitant]
     Active Substance: OMEPRAZOLE
     Indication: Chronic gastritis
     Dosage: 20 MILLIGRAM C
     Dates: start: 20240122, end: 20240127
  12. SITAGLIPTIN [Concomitant]
     Active Substance: SITAGLIPTIN
     Indication: Type 2 diabetes mellitus
     Dates: start: 20240117, end: 20240128
  13. SITAGLIPTIN [Concomitant]
     Active Substance: SITAGLIPTIN
     Indication: Type 2 diabetes mellitus
     Dates: start: 20231223, end: 20231227
  14. SODIUM BICARBONATE [Concomitant]
     Active Substance: SODIUM BICARBONATE
     Indication: Prophylaxis
     Dates: start: 20240123, end: 20240125
  15. posaconazole eg [Concomitant]
     Indication: Antifungal prophylaxis
     Dates: start: 20240118, end: 20240123
  16. MAGNESIUM SULFATE [Concomitant]
     Active Substance: MAGNESIUM SULFATE\MAGNESIUM SULFATE HEPTAHYDRATE
     Indication: Chronic gastritis
     Dates: start: 20240122, end: 20240123
  17. MAGNESIUM SULFATE [Concomitant]
     Active Substance: MAGNESIUM SULFATE\MAGNESIUM SULFATE HEPTAHYDRATE
     Indication: Chronic gastritis
     Dates: start: 20240126
  18. MAGNESIUM SULFATE [Concomitant]
     Active Substance: MAGNESIUM SULFATE\MAGNESIUM SULFATE HEPTAHYDRATE
     Indication: Chronic gastritis
     Dates: start: 20240114, end: 20240114
  19. ATORVASTATIN [Concomitant]
     Active Substance: ATORVASTATIN
     Indication: Coronary artery disease
     Dates: start: 20231228, end: 20240125
  20. ATORVASTATIN [Concomitant]
     Active Substance: ATORVASTATIN
     Indication: Coronary artery disease
     Dates: start: 20231221, end: 20231226
  21. INSULIN GLARGINE [Concomitant]
     Active Substance: INSULIN GLARGINE
     Indication: Type 2 diabetes mellitus
     Dates: start: 20240103, end: 20240104
  22. INSULIN GLARGINE [Concomitant]
     Active Substance: INSULIN GLARGINE
     Indication: Type 2 diabetes mellitus
     Dates: start: 20231229, end: 20231231
  23. INSULIN GLARGINE [Concomitant]
     Active Substance: INSULIN GLARGINE
     Indication: Type 2 diabetes mellitus
     Dates: start: 20240102, end: 20240102
  24. INSULIN GLARGINE [Concomitant]
     Active Substance: INSULIN GLARGINE
     Indication: Type 2 diabetes mellitus
     Dosage: 25 UNIT
     Dates: start: 20240101, end: 20240101
  25. INSULIN GLARGINE [Concomitant]
     Active Substance: INSULIN GLARGINE
     Indication: Type 2 diabetes mellitus
     Dates: start: 20240105, end: 20240108
  26. INSULIN GLARGINE [Concomitant]
     Active Substance: INSULIN GLARGINE
     Indication: Type 2 diabetes mellitus
     Dates: start: 20240109, end: 20240125
  27. INSULIN GLARGINE [Concomitant]
     Active Substance: INSULIN GLARGINE
     Indication: Type 2 diabetes mellitus
     Dates: start: 20231221, end: 20231228
  28. SUCRALFATE [Concomitant]
     Active Substance: SUCRALFATE
     Indication: Chronic gastritis
     Dates: start: 20240109, end: 20240128
  29. AZACITIDINE [Concomitant]
     Active Substance: AZACITIDINE
     Indication: Acute myeloid leukaemia
     Dates: start: 20240109, end: 20240115
  30. AMLODIPINE BESYLATE [Concomitant]
     Active Substance: AMLODIPINE BESYLATE
     Indication: Coronary artery disease
     Dates: start: 20240101, end: 20240125
  31. LACTULOSE [Concomitant]
     Active Substance: LACTULOSE
     Indication: Constipation prophylaxis
     Dates: start: 20240117, end: 20240121
  32. ACYCLOVIR [Concomitant]
     Active Substance: ACYCLOVIR
     Indication: Antiviral prophylaxis
     Dates: start: 20240123, end: 20240124
  33. ACYCLOVIR [Concomitant]
     Active Substance: ACYCLOVIR
     Indication: Antiviral prophylaxis
     Dates: start: 20240109, end: 20240123
  34. NYSTATIN [Concomitant]
     Active Substance: NYSTATIN
     Indication: Prophylaxis
  35. ALUMINUM HYDROXIDE [Concomitant]
     Active Substance: ALUMINUM HYDROXIDE
     Indication: Prophylaxis

REACTIONS (6)
  - Cardiac failure [Fatal]
  - Nephropathy [Not Recovered/Not Resolved]
  - Febrile neutropenia [Recovered/Resolved]
  - Acute kidney injury [Not Recovered/Not Resolved]
  - Superficial vein thrombosis [Not Recovered/Not Resolved]
  - Blood creatinine abnormal [Not Recovered/Not Resolved]

NARRATIVE: CASE EVENT DATE: 20240101
